FAERS Safety Report 14961284 (Version 5)
Quarter: 2018Q4

REPORT INFORMATION
  Report Type: Report from Study
  Country: None (occurrence: US)
  Receive Date: 20180601
  Receipt Date: 20181003
  Transmission Date: 20190204
  Serious: Yes (Other)
  Sender: FDA-Public Use
  Company Number: US-ABBVIE-17K-163-2017017-00

PATIENT
  Sex: Female

DRUGS (2)
  1. HUMIRA [Suspect]
     Active Substance: ADALIMUMAB
     Indication: PSORIASIS
  2. HUMIRA [Suspect]
     Active Substance: ADALIMUMAB
     Indication: PSORIATIC ARTHROPATHY
     Route: 058
     Dates: start: 20161210

REACTIONS (22)
  - Drug ineffective [Unknown]
  - Squamous cell carcinoma [Unknown]
  - Diabetes mellitus [Unknown]
  - Rash erythematous [Unknown]
  - Back pain [Unknown]
  - Dementia Alzheimer^s type [Unknown]
  - Osteoarthritis [Unknown]
  - Parkinson^s disease [Unknown]
  - Fall [Unknown]
  - Pain [Unknown]
  - Pain in extremity [Unknown]
  - Deafness [Unknown]
  - General physical health deterioration [Unknown]
  - Glossodynia [Unknown]
  - Psoriatic arthropathy [Not Recovered/Not Resolved]
  - Stomatitis [Unknown]
  - Tongue ulceration [Unknown]
  - Anger [Unknown]
  - Depression [Unknown]
  - Rheumatoid arthritis [Not Recovered/Not Resolved]
  - Oral pain [Unknown]
  - Psoriasis [Unknown]
